FAERS Safety Report 16984299 (Version 4)
Quarter: 2021Q2

REPORT INFORMATION
  Report Type: Spontaneous
  Country: US (occurrence: US)
  Receive Date: 20191101
  Receipt Date: 20210511
  Transmission Date: 20210716
  Serious: Yes (Hospitalization)
  Sender: FDA-Public Use
  Company Number: US-FARMAPROD-201906-0934

PATIENT
  Sex: Female

DRUGS (6)
  1. ERYTHROMYCIN. [Concomitant]
     Active Substance: ERYTHROMYCIN
  2. OXERVATE [Suspect]
     Active Substance: CENEGERMIN-BKBJ
     Indication: NEUROTROPHIC KERATOPATHY
     Route: 047
     Dates: start: 20191016, end: 201911
  3. OXERVATE [Suspect]
     Active Substance: CENEGERMIN-BKBJ
     Route: 047
     Dates: start: 20200211, end: 202003
  4. OXERVATE [Suspect]
     Active Substance: CENEGERMIN-BKBJ
     Route: 047
     Dates: start: 20210329
  5. TEARS AGAIN HYDRATE [Concomitant]
     Active Substance: DIETARY SUPPLEMENT
  6. OXERVATE [Suspect]
     Active Substance: CENEGERMIN-BKBJ
     Indication: DRY EYE
     Route: 047
     Dates: start: 20190606, end: 201908

REACTIONS (9)
  - Condition aggravated [Unknown]
  - Eye irritation [Unknown]
  - Eye pain [Unknown]
  - Drug ineffective [Unknown]
  - Wrong technique in product usage process [Unknown]
  - Hospitalisation [Unknown]
  - Product administration error [Unknown]
  - Product dose omission issue [Unknown]
  - Product storage error [Unknown]
